FAERS Safety Report 4499006-6 (Version None)
Quarter: 2004Q4

REPORT INFORMATION
  Report Type: 
  Country: None (occurrence: None)
  Receive Date: 20040927
  Receipt Date: 20040623
  Transmission Date: 20050328
  Serious: No
  Sender: FDA-Public Use
  Company Number: USA040670937

PATIENT
  Sex: Female

DRUGS (1)
  1. STRATTERA [Suspect]
     Indication: ATTENTION DEFICIT/HYPERACTIVITY DISORDER
     Dosage: 40 MG/1 DAY

REACTIONS (5)
  - BLOOD PRESSURE INCREASED [None]
  - DRY MOUTH [None]
  - HEART RATE INCREASED [None]
  - SEXUAL DYSFUNCTION [None]
  - THIRST [None]
